FAERS Safety Report 14202093 (Version 1)
Quarter: 2017Q4

REPORT INFORMATION
  Report Type: Spontaneous
  Country: FR (occurrence: FR)
  Receive Date: 20171117
  Receipt Date: 20171117
  Transmission Date: 20180321
  Serious: Yes (Other)
  Sender: FDA-Public Use
  Company Number: FR-009507513-1711FRA004478

PATIENT
  Age: 44 Year
  Sex: Female

DRUGS (1)
  1. ESMERON [Suspect]
     Active Substance: ROCURONIUM BROMIDE
     Indication: GENERAL ANAESTHESIA
     Dosage: 60 MG, UNK
     Route: 042
     Dates: start: 20171019, end: 20171019

REACTIONS (2)
  - Urticaria [Recovered/Resolved]
  - Tachycardia [Recovered/Resolved]
